FAERS Safety Report 12687980 (Version 2)
Quarter: 2016Q4

REPORT INFORMATION
  Report Type: Spontaneous
  Country: US (occurrence: US)
  Receive Date: 20160825
  Receipt Date: 20161222
  Transmission Date: 20170207
  Serious: Yes (Other)
  Sender: FDA-Public Use
  Company Number: US-BAYER-2016-163577

PATIENT
  Age: 38 Year
  Sex: Female

DRUGS (18)
  1. LEVAQUIN [Suspect]
     Active Substance: LEVOFLOXACIN
     Indication: INFECTION
     Dosage: 500 MG, BID
     Dates: start: 20060410, end: 20060420
  2. ATENOLOL. [Concomitant]
     Active Substance: ATENOLOL
     Indication: SUPRAVENTRICULAR TACHYCARDIA
     Dosage: 25 MG, QD
     Dates: start: 2013
  3. CLONAZEPAM. [Concomitant]
     Active Substance: CLONAZEPAM
     Indication: LYME DISEASE
     Dosage: 1 MG, TID
  4. VALACICLOVIR [Concomitant]
     Active Substance: VALACYCLOVIR HYDROCHLORIDE
     Dosage: 1 G, QD
  5. OXYCODONE [Concomitant]
     Active Substance: OXYCODONE
     Indication: NEUROPATHY PERIPHERAL
  6. OXYCODONE [Concomitant]
     Active Substance: OXYCODONE
     Indication: PAIN
     Dosage: 30 MG, QID
     Dates: start: 2010
  7. LYRICA [Concomitant]
     Active Substance: PREGABALIN
     Indication: FIBROMYALGIA
     Dosage: 300 MG, QD
     Dates: start: 2016
  8. LYRICA [Concomitant]
     Active Substance: PREGABALIN
     Indication: LYME DISEASE
  9. LYRICA [Concomitant]
     Active Substance: PREGABALIN
     Indication: NEUROPATHY PERIPHERAL
  10. WELCHOL [Concomitant]
     Active Substance: COLESEVELAM HYDROCHLORIDE
     Indication: LYME DISEASE
     Dosage: 625 MG, TID
  11. DOXY [DOXYCYCLINE HYCLATE] [Concomitant]
     Indication: LYME DISEASE
     Dosage: 100 MG, 2-4X DAY
  12. GAMUNEX [Concomitant]
     Active Substance: HUMAN IMMUNOGLOBULIN G
     Indication: NEUROPATHY PERIPHERAL
     Dosage: 60 MG, Q2WK
  13. CIPRO [Suspect]
     Active Substance: CIPROFLOXACIN HYDROCHLORIDE
     Indication: INFECTION
     Dosage: 500 MG, BID
     Dates: start: 20000629, end: 20000711
  14. CIPRO [Suspect]
     Active Substance: CIPROFLOXACIN HYDROCHLORIDE
     Indication: INFECTION
     Dosage: 500 MG, BID
     Dates: start: 20101027, end: 20101109
  15. CLONAZEPAM. [Concomitant]
     Active Substance: CLONAZEPAM
     Indication: NEUROPATHY PERIPHERAL
  16. OXYCODONE [Concomitant]
     Active Substance: OXYCODONE
     Indication: LYME DISEASE
  17. HYDROXYCHLOROQUINE [Concomitant]
     Active Substance: HYDROXYCHLOROQUINE
     Indication: LYME DISEASE
     Dosage: 200 MG, BID
  18. CELEBREX [Concomitant]
     Active Substance: CELECOXIB
     Indication: FIBROMYALGIA
     Dosage: 200 MG, BID

REACTIONS (4)
  - Physical disability [None]
  - Pain [Not Recovered/Not Resolved]
  - Panic attack [None]
  - Neuropathy peripheral [Not Recovered/Not Resolved]

NARRATIVE: CASE EVENT DATE: 20150422
